FAERS Safety Report 9274771 (Version 13)
Quarter: 2014Q1

REPORT INFORMATION
  Report Type: Spontaneous
  Country: US (occurrence: US)
  Receive Date: 20130507
  Receipt Date: 20140317
  Transmission Date: 20141002
  Serious: No
  Sender: FDA-Public Use
  Company Number: US-009507513-1305USA001296

PATIENT
  Age: 49 Year
  Sex: Female
  Weight: 81.63 kg

DRUGS (11)
  1. REBETOL [Suspect]
     Indication: CHRONIC HEPATITIS C
     Dosage: 400 MG, QAM
     Route: 048
     Dates: start: 20130321
  2. REBETOL [Suspect]
     Dosage: 600 MG, QPM
     Route: 048
     Dates: start: 20130321
  3. REBETOL [Suspect]
     Dosage: 1000 MG, QD
     Route: 048
     Dates: start: 20130326
  4. REBETOL [Suspect]
     Dosage: 400 MG, QAM (600 MG, 1 IN 1 D)
     Route: 048
     Dates: start: 20130812
  5. REBETOL [Suspect]
     Dosage: 600 MG, QPM (600 MG, 1 IN 1 D)
     Route: 048
     Dates: start: 20130812
  6. VICTRELIS [Suspect]
     Indication: CHRONIC HEPATITIS C
     Dosage: 800, TID
     Route: 048
     Dates: start: 20130321, end: 201312
  7. VICTRELIS [Suspect]
     Dosage: 800 MG, TID
     Route: 048
     Dates: start: 20130424
  8. PEGASYS [Suspect]
     Indication: CHRONIC HEPATITIS C
     Dosage: 180 MICROGRAM, QW
     Route: 058
     Dates: start: 20130321
  9. PEGASYS [Suspect]
     Dosage: 180 MICROGRAM, QW
     Route: 058
     Dates: start: 20130326
  10. PEGASYS [Suspect]
     Dosage: 135 MICROGRAM, QW
     Route: 058
     Dates: start: 20130806, end: 20140218
  11. METRONIDAZOLE [Concomitant]
     Dosage: 500 MG, BID
     Route: 048

REACTIONS (27)
  - Vulvovaginal mycotic infection [Recovered/Resolved]
  - Ear pain [Unknown]
  - Local swelling [Unknown]
  - Pain in extremity [Unknown]
  - Diabetic neuropathy [Unknown]
  - Thirst [Unknown]
  - Feeling abnormal [Unknown]
  - Abdominal discomfort [Unknown]
  - Dyspepsia [Not Recovered/Not Resolved]
  - Ear discomfort [Unknown]
  - Memory impairment [Not Recovered/Not Resolved]
  - Headache [Not Recovered/Not Resolved]
  - Paraesthesia [Unknown]
  - Platelet count decreased [Recovering/Resolving]
  - Decreased appetite [Unknown]
  - Nausea [Not Recovered/Not Resolved]
  - Insomnia [Unknown]
  - Diarrhoea [Unknown]
  - Dry skin [Unknown]
  - Dry mouth [Unknown]
  - Anaemia [Unknown]
  - Insomnia [Unknown]
  - Amnesia [Unknown]
  - Fatigue [Unknown]
  - White blood cell count decreased [Unknown]
  - Syncope [Unknown]
  - Dehydration [Unknown]
